FAERS Safety Report 13619214 (Version 1)
Quarter: 2017Q2

REPORT INFORMATION
  Report Type: Spontaneous
  Country: US (occurrence: US)
  Receive Date: 20170606
  Receipt Date: 20170606
  Transmission Date: 20170830
  Serious: Yes (Other)
  Sender: FDA-Public Use
  Company Number: None

PATIENT
  Age: 27 Year
  Sex: Female
  Weight: 64.35 kg

DRUGS (1)
  1. LINZESS [Suspect]
     Active Substance: LINACLOTIDE
     Indication: IRRITABLE BOWEL SYNDROME
     Route: 048
     Dates: start: 20170606, end: 20170606

REACTIONS (5)
  - Feeling jittery [None]
  - Feeling abnormal [None]
  - Drug ineffective [None]
  - Palpitations [None]
  - Blood pressure systolic increased [None]

NARRATIVE: CASE EVENT DATE: 20170606
